FAERS Safety Report 10621129 (Version 10)
Quarter: 2021Q3

REPORT INFORMATION
  Report Type: Report from Study
  Country: US (occurrence: US)
  Receive Date: 20141203
  Receipt Date: 20210903
  Transmission Date: 20211014
  Serious: Yes (Other)
  Sender: FDA-Public Use
  Company Number: US-AMGEN INC.-USASL2014092716

PATIENT
  Age: 66 Year
  Sex: Female

DRUGS (15)
  1. SUPER B COMPLEX [Concomitant]
     Active Substance: CYANOCOBALAMIN\DEXPANTHENOL\NIACINAMIDE\PYRIDOXINE HYDROCHLORIDE\RIBOFLAVIN 5^-PHOSPHATE SODIUM\THIAMINE HYDROCHLORIDE\VITAMIN B COMPLEX
     Dosage: UNK
  2. SINGULAIR [Concomitant]
     Active Substance: MONTELUKAST SODIUM
  3. VITAMIN D [Concomitant]
     Active Substance: VITAMIN D NOS
     Dosage: UNK
  4. OMEPRAZOLE. [Concomitant]
     Active Substance: OMEPRAZOLE
     Dosage: 40 MILLIGRAM
  5. PRILOSEC [Concomitant]
     Active Substance: OMEPRAZOLE MAGNESIUM
     Dosage: UNK
  6. LATANOPROST. [Concomitant]
     Active Substance: LATANOPROST
     Dosage: UNK
  7. DOCUSATE [Concomitant]
     Active Substance: DOCUSATE
     Dosage: UNK
  8. ENBREL [Suspect]
     Active Substance: ETANERCEPT
     Dosage: 50 MILLIGRAM, QWK
     Route: 065
  9. PROLIA [Concomitant]
     Active Substance: DENOSUMAB
     Indication: PRODUCT USED FOR UNKNOWN INDICATION
     Dosage: UNK
     Route: 065
  10. CALCIUM [Concomitant]
     Active Substance: CALCIUM
     Dosage: UNK
  11. TRIAMTERENE AND HYDROCHLOROTHIAZIDE [Concomitant]
     Active Substance: HYDROCHLOROTHIAZIDE\TRIAMTERENE
     Dosage: UNK
  12. ENBREL [Suspect]
     Active Substance: ETANERCEPT
     Indication: RHEUMATOID ARTHRITIS
     Dosage: 25 MG, 2 TIMES/WK EVERY MONDAY AND THURSDAY
     Route: 058
     Dates: start: 2001
  13. ENBREL [Suspect]
     Active Substance: ETANERCEPT
     Dosage: 50 MILLIGRAM, QWK
     Route: 065
  14. COMBIGAN [Concomitant]
     Active Substance: BRIMONIDINE TARTRATE\TIMOLOL MALEATE
     Dosage: UNK
  15. LIPITOR [Concomitant]
     Active Substance: ATORVASTATIN CALCIUM
     Dosage: 10 MILLIGRAM

REACTIONS (19)
  - Contusion [Unknown]
  - Gait inability [Unknown]
  - Product dose omission issue [Unknown]
  - Injection site pain [Unknown]
  - Blindness [Not Recovered/Not Resolved]
  - Therapeutic product effect decreased [Unknown]
  - Pain [Unknown]
  - Glaucoma [Unknown]
  - Macular degeneration [Unknown]
  - Alopecia [Not Recovered/Not Resolved]
  - Corneal disorder [Unknown]
  - Injection site injury [Unknown]
  - Asthma [Unknown]
  - Injection site erythema [Not Recovered/Not Resolved]
  - Needle issue [Unknown]
  - Swelling [Unknown]
  - Injection site haemorrhage [Unknown]
  - Device issue [Unknown]
  - Injection site pruritus [Unknown]

NARRATIVE: CASE EVENT DATE: 2012
